FAERS Safety Report 4343185-8 (Version None)
Quarter: 2004Q2

REPORT INFORMATION
  Report Type: 
  Country: None (occurrence: None)
  Receive Date: 20040421
  Receipt Date: 20040412
  Transmission Date: 20050107
  Serious: Yes (Other)
  Sender: FDA-Public Use
  Company Number: PHEH2004US04137

PATIENT
  Age: 78 Year
  Sex: Male

DRUGS (20)
  1. AREDIA [Suspect]
     Dosage: 90 MG, QMO
     Dates: start: 20010726, end: 20010801
  2. AREDIA [Suspect]
     Dosage: 90 MG, QMO
     Dates: start: 20020401, end: 20030601
  3. AREDIA [Suspect]
     Dosage: 90 MG, ONCE/SINGLE
     Dates: start: 20031101
  4. ZOMETA [Suspect]
     Dosage: 4 MG, QMO
     Dates: start: 20011001, end: 20020201
  5. ZOMETA [Suspect]
     Dosage: 4 MG, QMO
     Dates: start: 20030701, end: 20031001
  6. THALIDOMIDE [Concomitant]
     Dosage: 50 MG, UNK
     Dates: start: 20011101
  7. HYDROCORTISONE [Concomitant]
     Dosage: 30 MG, UNK
  8. CELEBREX [Concomitant]
  9. PROSCAR [Concomitant]
  10. BETAPACE [Concomitant]
  11. LOTREL [Concomitant]
  12. ISOSORBIDE [Concomitant]
  13. INNOHEP [Concomitant]
  14. EMCYT [Concomitant]
  15. KYTRIL [Concomitant]
  16. TAMSULOSIN HYDROCHLORIDE [Concomitant]
  17. CALCITRIOL [Concomitant]
  18. LEUKINE [Concomitant]
  19. SYNTHROID [Concomitant]
  20. PROVIGIL [Concomitant]

REACTIONS (4)
  - IMPAIRED HEALING [None]
  - OSTEONECROSIS [None]
  - PAIN IN JAW [None]
  - TOOTH EXTRACTION [None]
